FAERS Safety Report 4830282-3 (Version None)
Quarter: 2005Q4

REPORT INFORMATION
  Report Type: 
  Country: None (occurrence: None)
  Receive Date: 20051117
  Receipt Date: 20050930
  Transmission Date: 20060501
  Serious: Yes (Other)
  Sender: FDA-Public Use
  Company Number: US-MERCK-0510USA01952

PATIENT
  Age: 68 Year
  Sex: Female
  Weight: 57 kg

DRUGS (4)
  1. VIOXX [Suspect]
     Indication: ARTHRITIS
     Route: 048
     Dates: start: 20031104, end: 20040325
  2. AMBIEN [Concomitant]
     Route: 065
  3. DIOVAN [Concomitant]
     Route: 065
  4. PROPOXYPHENE NAPSYLATE [Concomitant]
     Route: 065

REACTIONS (5)
  - BACK PAIN [None]
  - CARDIAC DISORDER [None]
  - DIZZINESS [None]
  - ISCHAEMIC STROKE [None]
  - NAUSEA [None]
